FAERS Safety Report 7424694-1 (Version None)
Quarter: 2011Q2

REPORT INFORMATION
  Report Type: 
  Country: None (occurrence: None)
  Receive Date: 20110419
  Receipt Date: 20110406
  Transmission Date: 20111010
  Serious: Yes (Other)
  Sender: FDA-Public Use
  Company Number: DE-ELI_LILLY_AND_COMPANY-DE201104001677

PATIENT
  Sex: Female

DRUGS (6)
  1. THYROID PREPARATIONS [Concomitant]
  2. FORTEO [Suspect]
     Indication: OSTEOPOROSIS
     Dosage: UNK, QD
     Route: 058
     Dates: start: 20101008
  3. VITAMIN B-12 [Concomitant]
  4. CALCIUM [Concomitant]
  5. CHOLESTEROL [Concomitant]
  6. VITAMIN D [Concomitant]

REACTIONS (2)
  - FALL [None]
  - PUBIS FRACTURE [None]
